FAERS Safety Report 4494583-3 (Version None)
Quarter: 2004Q4

REPORT INFORMATION
  Report Type: 
  Country: None (occurrence: None)
  Receive Date: 20041105
  Receipt Date: 20041028
  Transmission Date: 20050328
  Serious: Yes (Hospitalization, Disabling)
  Sender: FDA-Public Use
  Company Number: US-MERCK-0410USA04296

PATIENT
  Age: 62 Year
  Sex: Female

DRUGS (7)
  1. VIOXX [Suspect]
     Indication: PAIN MANAGEMENT
     Route: 048
  2. NORVASC [Concomitant]
     Route: 065
  3. K-DUR 10 [Concomitant]
     Route: 065
  4. ASPIRIN [Concomitant]
     Route: 065
  5. ZANTAC [Concomitant]
     Route: 065
  6. IMDUR [Concomitant]
     Route: 065
  7. VASOTEC [Concomitant]
     Route: 065

REACTIONS (1)
  - CHEST PAIN [None]
